FAERS Safety Report 8507147-9 (Version None)
Quarter: 2012Q3

REPORT INFORMATION
  Report Type: 
  Country: None (occurrence: None)
  Receive Date: 20120712
  Receipt Date: 20120703
  Transmission Date: 20120928
  Serious: Yes (Death)
  Sender: FDA-Public Use
  Company Number: JP-SANOFI-AVENTIS-2012SA047871

PATIENT
  Age: 75 Year
  Sex: Male
  Weight: 65 kg

DRUGS (5)
  1. MICARDIS [Concomitant]
  2. TAXOTERE [Suspect]
     Route: 042
     Dates: start: 20120405
  3. CALBLOCK [Concomitant]
  4. GARENOXACIN MESYLATE [Suspect]
     Indication: PNEUMONIA
     Route: 048
     Dates: start: 20120612
  5. GARENOXACIN MESYLATE [Suspect]
     Indication: BRONCHITIS
     Route: 048
     Dates: start: 20120612

REACTIONS (4)
  - INTERSTITIAL LUNG DISEASE [None]
  - HYPOXIA [None]
  - PYREXIA [None]
  - RASH [None]
